FAERS Safety Report 17367080 (Version 1)
Quarter: 2020Q1

REPORT INFORMATION
  Report Type: Spontaneous
  Country: AR (occurrence: AR)
  Receive Date: 20200204
  Receipt Date: 20200204
  Transmission Date: 20200409
  Serious: Yes (Other)
  Sender: FDA-Public Use
  Company Number: AR-JNJFOC-20200142393

PATIENT
  Sex: Female

DRUGS (1)
  1. REMICADE [Suspect]
     Active Substance: INFLIXIMAB
     Indication: RHEUMATOID ARTHRITIS
     Route: 042
     Dates: start: 201306

REACTIONS (3)
  - Treatment noncompliance [Unknown]
  - Ischaemic cerebral infarction [Not Recovered/Not Resolved]
  - Dysarthria [Unknown]

NARRATIVE: CASE EVENT DATE: 2019
